FAERS Safety Report 4419584-2 (Version None)
Quarter: 2004Q3

REPORT INFORMATION
  Report Type: 
  Country: None (occurrence: None)
  Receive Date: 20040809
  Receipt Date: 20040223
  Transmission Date: 20050211
  Serious: Yes (Hospitalization)
  Sender: FDA-Public Use
  Company Number: US-GLAXOSMITHKLINE-A0499415A

PATIENT
  Age: 60 Year
  Sex: Male

DRUGS (2)
  1. PAXIL [Suspect]
     Indication: DRUG USE FOR UNKNOWN INDICATION
     Dosage: 20MG PER DAY
     Route: 048
     Dates: end: 20040213
  2. NONE [Concomitant]

REACTIONS (4)
  - AGITATION [None]
  - GASTROINTESTINAL DISORDER [None]
  - INSOMNIA [None]
  - WEIGHT DECREASED [None]
